FAERS Safety Report 4422014-8 (Version None)
Quarter: 2004Q3

REPORT INFORMATION
  Report Type: 
  Country: None (occurrence: None)
  Receive Date: 20040804
  Receipt Date: 20040721
  Transmission Date: 20050211
  Serious: Yes (Hospitalization)
  Sender: FDA-Public Use
  Company Number: 04P-163-0267722-00

PATIENT
  Age: 71 Year
  Sex: Female
  Weight: 61.2356 kg

DRUGS (10)
  1. HUMIRA [Suspect]
     Indication: RHEUMATOID ARTHRITIS
     Dosage: 40 MG, 1 IN 2 WK, SUBCUTANEOUS
     Route: 058
     Dates: start: 20040201
  2. WARFARIN SODIUM [Concomitant]
  3. ASPIRIN [Concomitant]
  4. DIGOXIN [Concomitant]
  5. CAPTOPRIL [Concomitant]
  6. PREDNISONE [Concomitant]
  7. MULTI-VITAMINS [Concomitant]
  8. FOLIC ACID [Concomitant]
  9. IRON [Concomitant]
  10. FISH OIL [Concomitant]

REACTIONS (3)
  - ANAEMIA [None]
  - PRURITUS [None]
  - URTICARIA [None]
